FAERS Safety Report 9016273 (Version 2)
Quarter: 2013Q1

REPORT INFORMATION
  Report Type: Report from Study
  Country: BE (occurrence: BE)
  Receive Date: 20130116
  Receipt Date: 20130208
  Transmission Date: 20140127
  Serious: Yes (Hospitalization)
  Sender: FDA-Public Use
  Company Number: BE-BAXTER-2013BAX001264

PATIENT
  Age: 50 Year
  Sex: Female
  Weight: 51 kg

DRUGS (6)
  1. ENDOXAN [Suspect]
     Indication: HER-2 POSITIVE BREAST CANCER
     Route: 042
     Dates: start: 20121128
  2. ENDOXAN [Suspect]
     Route: 042
     Dates: start: 20130115
  3. FLUOROURACIL [Suspect]
     Indication: HER-2 POSITIVE BREAST CANCER
     Route: 042
     Dates: start: 20121128
  4. FLUOROURACIL [Suspect]
     Route: 042
     Dates: start: 20130115
  5. EPIRUBICIN HYDROCHLORIDE [Suspect]
     Indication: HER-2 POSITIVE BREAST CANCER
     Route: 042
     Dates: start: 20121128
  6. EPIRUBICIN HYDROCHLORIDE [Suspect]
     Route: 042
     Dates: start: 20130115

REACTIONS (1)
  - Pyrexia [Recovered/Resolved]
